FAERS Safety Report 15524697 (Version 19)
Quarter: 2020Q4

REPORT INFORMATION
  Report Type: Spontaneous
  Country: US (occurrence: US)
  Receive Date: 20181018
  Receipt Date: 20201210
  Transmission Date: 20210113
  Serious: Yes (Hospitalization, Other)
  Sender: FDA-Public Use
  Company Number: US-PFIZER INC-2018421128

PATIENT
  Age: 67 Year
  Sex: Female
  Weight: 94 kg

DRUGS (5)
  1. IBRANCE [Suspect]
     Active Substance: PALBOCICLIB
     Dosage: 75 MG
     Dates: start: 2018, end: 2018
  2. IBRANCE [Suspect]
     Active Substance: PALBOCICLIB
     Indication: BREAST CANCER METASTATIC
     Dosage: 125 MG, 1X/DAY
     Route: 048
     Dates: end: 20181011
  3. FASLODEX [Concomitant]
     Active Substance: FULVESTRANT
     Indication: BREAST CANCER FEMALE
     Dosage: 500 MG, CYCLIC (500 MG INJECTED IN HER HIP, EVERY TWO WEEKS)
     Dates: start: 20180109
  4. IBRANCE [Suspect]
     Active Substance: PALBOCICLIB
     Dosage: 100 MG, CYCLIC (FOR 21 DAYS)
     Dates: start: 201809, end: 201812
  5. IBRANCE [Suspect]
     Active Substance: PALBOCICLIB
     Dosage: 75 MG

REACTIONS (19)
  - Lymphoedema [Unknown]
  - Skin lesion [Not Recovered/Not Resolved]
  - Neuropathy peripheral [Unknown]
  - White blood cell count decreased [Not Recovered/Not Resolved]
  - Peripheral swelling [Unknown]
  - Poor peripheral circulation [Unknown]
  - Hernia [Unknown]
  - Arthralgia [Not Recovered/Not Resolved]
  - Constipation [Recovered/Resolved]
  - Uterine leiomyoma [Unknown]
  - Malaise [Unknown]
  - Hepatic lesion [Unknown]
  - Asthenia [Not Recovered/Not Resolved]
  - Cough [Not Recovered/Not Resolved]
  - Musculoskeletal discomfort [Not Recovered/Not Resolved]
  - Pleural effusion [Unknown]
  - Fatigue [Not Recovered/Not Resolved]
  - Hot flush [Not Recovered/Not Resolved]
  - Thrombosis [Unknown]

NARRATIVE: CASE EVENT DATE: 2018
